FAERS Safety Report 6175908-X (Version None)
Quarter: 2009Q2

REPORT INFORMATION
  Report Type: 
  Country: None (occurrence: None)
  Receive Date: 20090501
  Receipt Date: 20090227
  Transmission Date: 20091009
  Serious: Yes (Other)
  Sender: FDA-Public Use
  Company Number: GB-ASTRAZENECA-2009AC01121

PATIENT
  Age: 62 Year
  Sex: Male

DRUGS (8)
  1. MEROPENEM [Suspect]
     Indication: BACTERAEMIA
  2. TAZOCIN [Suspect]
     Indication: BACTERAEMIA
  3. GENTAMICIN [Suspect]
     Indication: BACTERAEMIA
  4. VANCOMYCIN HCL [Suspect]
     Indication: BACTERAEMIA
  5. CYCLOSPORINE [Concomitant]
     Indication: PROPHYLAXIS AGAINST GRAFT VERSUS HOST DISEASE
  6. ACYCLOVIR [Concomitant]
     Indication: ANTIVIRAL PROPHYLAXIS
  7. ALEMTAZUMAB [Concomitant]
     Indication: STEM CELL TRANSPLANT
  8. FLUDRABINE [Concomitant]
     Indication: STEM CELL TRANSPLANT

REACTIONS (6)
  - DERMATITIS EXFOLIATIVE [None]
  - DRUG RASH WITH EOSINOPHILIA AND SYSTEMIC SYMPTOMS [None]
  - GENERALISED OEDEMA [None]
  - LIVER FUNCTION TEST ABNORMAL [None]
  - LYMPHADENOPATHY [None]
  - PYREXIA [None]
